FAERS Safety Report 16991673 (Version 12)
Quarter: 2021Q3

REPORT INFORMATION
  Report Type: Report from Study
  Country: None (occurrence: FR)
  Receive Date: 20191104
  Receipt Date: 20210924
  Transmission Date: 20211014
  Serious: Yes (Death, Other)
  Sender: FDA-Public Use
  Company Number: FR-ABBVIE-19K-056-2984036-00

PATIENT
  Age: 75 Year
  Sex: Male
  Weight: 103 kg

DRUGS (13)
  1. VENCLYXTO [Suspect]
     Active Substance: VENETOCLAX
     Route: 048
     Dates: start: 20190816, end: 20190822
  2. VENCLYXTO [Suspect]
     Active Substance: VENETOCLAX
     Indication: CHRONIC LYMPHOCYTIC LEUKAEMIA
     Route: 048
     Dates: start: 20190809, end: 20190815
  3. ELIQUIS [Concomitant]
     Active Substance: APIXABAN
     Indication: ARRHYTHMIA
     Dates: start: 2019, end: 20200119
  4. RENITEC [Concomitant]
     Indication: ISCHAEMIC CARDIOMYOPATHY
     Dates: start: 2019, end: 20200119
  5. COLCHICINE. [Concomitant]
     Active Substance: COLCHICINE
     Indication: GOUT
     Dates: start: 2019, end: 20200119
  6. PENTACARINAT [Concomitant]
     Active Substance: PENTAMIDINE ISETHIONATE
     Indication: INFECTION
     Dates: start: 2018, end: 20200119
  7. ELIQUIS [Concomitant]
     Active Substance: APIXABAN
     Indication: ATRIAL FIBRILLATION
  8. ZELITREX [Concomitant]
     Active Substance: VALACYCLOVIR HYDROCHLORIDE
     Indication: PRODUCT USED FOR UNKNOWN INDICATION
     Dates: start: 2017, end: 20200119
  9. ADENURIC [Concomitant]
     Active Substance: FEBUXOSTAT
     Indication: GOUT
     Dates: start: 2019, end: 20200119
  10. HIZENTRA [Concomitant]
     Active Substance: HUMAN IMMUNOGLOBULIN G
     Indication: IMMUNOGLOBULINS
     Dates: start: 2019, end: 20200119
  11. VENCLYXTO [Suspect]
     Active Substance: VENETOCLAX
     Route: 048
     Dates: start: 20190823, end: 20190911
  12. VENCLYXTO [Suspect]
     Active Substance: VENETOCLAX
     Route: 048
     Dates: start: 20190912, end: 20200116
  13. TEMERIT [Concomitant]
     Active Substance: NEBIVOLOL
     Indication: HYPERTENSION
     Dates: start: 2019, end: 20200119

REACTIONS (15)
  - Chronic kidney disease [Not Recovered/Not Resolved]
  - Productive cough [Recovered/Resolved]
  - Tumour lysis syndrome [Not Recovered/Not Resolved]
  - General physical health deterioration [Fatal]
  - Dyspnoea [Recovered/Resolved]
  - Chronic lymphocytic leukaemia [Unknown]
  - Abdominal pain upper [Not Recovered/Not Resolved]
  - Oedema peripheral [Unknown]
  - Hypocalcaemia [Recovered/Resolved]
  - Hyperuricaemia [Recovered/Resolved]
  - Abdominal pain [Not Recovered/Not Resolved]
  - Hyperkalaemia [Not Recovered/Not Resolved]
  - Tumour lysis syndrome [Unknown]
  - Richter^s syndrome [Fatal]
  - Hypogammaglobulinaemia [Unknown]

NARRATIVE: CASE EVENT DATE: 2019
